FAERS Safety Report 10248762 (Version 1)
Quarter: 2014Q2

REPORT INFORMATION
  Report Type: Spontaneous
  Country: FR (occurrence: FR)
  Receive Date: 20140620
  Receipt Date: 20140620
  Transmission Date: 20141212
  Serious: Yes (Disabling, Other)
  Sender: FDA-Public Use
  Company Number: FR-BAYER-2014-088227

PATIENT
  Age: 51 Year
  Sex: Female

DRUGS (5)
  1. IZILOX [Suspect]
     Indication: BRONCHOPNEUMOPATHY
     Dosage: 400 MG, QD
     Dates: start: 201305
  2. IZILOX [Suspect]
     Indication: LOWER RESPIRATORY TRACT INFECTION
  3. LEVOTHYROX [Concomitant]
  4. COAPROVEL [Concomitant]
  5. SYMBICORT [Concomitant]

REACTIONS (3)
  - Mydriasis [None]
  - Photophobia [None]
  - Uveitis [None]
